FAERS Safety Report 7118520-8 (Version None)
Quarter: 2010Q4

REPORT INFORMATION
  Report Type: 
  Country: None (occurrence: None)
  Receive Date: 20101123
  Receipt Date: 20100930
  Transmission Date: 20110411
  Serious: No
  Sender: FDA-Public Use
  Company Number: US-MYLANLABS-2010S1018124

PATIENT
  Sex: Male

DRUGS (8)
  1. CLONAZEPAM [Suspect]
     Indication: CONVULSION
     Route: 048
  2. CLONAZEPAM [Suspect]
     Indication: ANXIETY
     Route: 048
  3. CLONAZEPAM [Suspect]
     Route: 048
     Dates: end: 20100928
  4. CLONAZEPAM [Suspect]
     Route: 048
     Dates: end: 20100928
  5. CLONAZEPAM [Suspect]
     Route: 048
     Dates: start: 20100929
  6. CLONAZEPAM [Suspect]
     Route: 048
     Dates: start: 20100929
  7. VENLAFAXINE [Concomitant]
     Indication: ANXIETY
  8. PROPRANOLOL [Concomitant]

REACTIONS (3)
  - ANXIETY [None]
  - DRUG INEFFECTIVE [None]
  - WRONG TECHNIQUE IN DRUG USAGE PROCESS [None]
